FAERS Safety Report 4957251-7 (Version None)
Quarter: 2006Q1

REPORT INFORMATION
  Report Type: 
  Country: None (occurrence: None)
  Receive Date: 20060323
  Receipt Date: 20060309
  Transmission Date: 20060701
  Serious: Yes (Hospitalization)
  Sender: FDA-Public Use
  Company Number: US200603002235

PATIENT
  Age: 63 Year
  Sex: Female

DRUGS (3)
  1. PROZAC [Suspect]
     Indication: DEPRESSION
     Dosage: 20 MG
  2. THORAZINE [Concomitant]
  3. DIURETICS [Concomitant]

REACTIONS (1)
  - CARDIAC FAILURE CHRONIC [None]
